FAERS Safety Report 7401220-4 (Version None)
Quarter: 2011Q2

REPORT INFORMATION
  Report Type: 
  Country: None (occurrence: None)
  Receive Date: 20110407
  Receipt Date: 20110401
  Transmission Date: 20111010
  Serious: Yes (Other)
  Sender: FDA-Public Use
  Company Number: GB-TEVA-274846ISR

PATIENT
  Sex: Female

DRUGS (1)
  1. PREDNISOLONE [Suspect]
     Dosage: MIXTURE OF ENTERIC COATED AND PLAIN PREDNISOLONE TABLETS

REACTIONS (1)
  - ANAPHYLACTIC REACTION [None]
